FAERS Safety Report 11774261 (Version 6)
Quarter: 2024Q2

REPORT INFORMATION
  Report Type: Report from Study
  Country: CA (occurrence: CA)
  Receive Date: 20151124
  Receipt Date: 20240625
  Transmission Date: 20240716
  Serious: No
  Sender: FDA-Public Use
  Company Number: CA-JNJFOC-20151117366

PATIENT
  Age: 70 Year
  Sex: Female
  Weight: 107.3 kg

DRUGS (10)
  1. STELARA [Suspect]
     Active Substance: USTEKINUMAB
     Indication: Psoriasis
     Route: 058
     Dates: start: 20060214
  2. STELARA [Suspect]
     Active Substance: USTEKINUMAB
     Route: 058
     Dates: start: 20110203
  3. STELARA [Suspect]
     Active Substance: USTEKINUMAB
     Route: 058
     Dates: start: 20110303
  4. STELARA [Suspect]
     Active Substance: USTEKINUMAB
     Route: 058
     Dates: start: 20110603
  5. STELARA [Suspect]
     Active Substance: USTEKINUMAB
     Route: 058
     Dates: start: 20160226
  6. STELARA [Suspect]
     Active Substance: USTEKINUMAB
     Route: 058
     Dates: start: 20060214, end: 20060214
  7. PERINDOPRIL [Concomitant]
     Active Substance: PERINDOPRIL
     Indication: Psoriatic arthropathy
     Route: 048
     Dates: start: 20140701
  8. METFORMIN [Concomitant]
     Active Substance: METFORMIN HYDROCHLORIDE
     Indication: Diabetes mellitus
     Route: 048
     Dates: start: 201202
  9. ADVIL [Concomitant]
     Active Substance: IBUPROFEN\IBUPROFEN SODIUM
     Indication: Arthralgia
     Route: 048
     Dates: start: 20110315
  10. TYLENOL [Concomitant]
     Active Substance: ACETAMINOPHEN
     Indication: Psoriatic arthropathy
     Route: 048
     Dates: start: 201501

REACTIONS (2)
  - Transitional cell carcinoma [Unknown]
  - Bladder cancer [Not Recovered/Not Resolved]

NARRATIVE: CASE EVENT DATE: 20150923
